FAERS Safety Report 15290098 (Version 2)
Quarter: 2018Q3

REPORT INFORMATION
  Report Type: Spontaneous
  Country: BR (occurrence: BR)
  Receive Date: 20180817
  Receipt Date: 20180827
  Transmission Date: 20181010
  Serious: Yes (Hospitalization, Other)
  Sender: FDA-Public Use
  Company Number: BR-PFIZER INC-2018327424

PATIENT
  Age: 46 Year
  Sex: Female
  Weight: 75 kg

DRUGS (11)
  1. EVOMIXAN [Concomitant]
     Active Substance: MITOXANTRONE HYDROCHLORIDE
     Dosage: 17/73 MG
     Dates: start: 20180110, end: 20180112
  2. PANTOPRAZOLE [Concomitant]
     Active Substance: PANTOPRAZOLE
     Dosage: 20 MG, DAILY
  3. MELATONIN [Concomitant]
     Active Substance: MELATONIN
     Dosage: 1 DF, DAILY
  4. VESANOID [Suspect]
     Active Substance: TRETINOIN
     Indication: ACUTE PROMYELOCYTIC LEUKAEMIA
     Dosage: 8 DF, DAILY (10 MG 8 CAPSULES/DAY FOR 15 DAYS)
  5. VESANOID [Suspect]
     Active Substance: TRETINOIN
     Dosage: 54 MG/M2, DAILY (FOR 15 DAYS)
     Route: 048
     Dates: start: 20171211
  6. AMLODIPINE [Concomitant]
     Active Substance: AMLODIPINE BESYLATE
     Dosage: 5 MG, DAILY
  7. ZAVEDOS [Suspect]
     Active Substance: IDARUBICIN
     Dosage: 21.42 MG, UNK
     Route: 042
     Dates: start: 20180207, end: 20180208
  8. ACICLOVIR [Concomitant]
     Active Substance: ACYCLOVIR
     Dosage: 400 MG, 2X/DAY (400 MG 1 CAPSULE EVERY 12 HOURS)
  9. PREDNISONE. [Concomitant]
     Active Substance: PREDNISONE
     Dosage: 5 MG, DAILY
  10. RIVOTRIL [Concomitant]
     Active Substance: CLONAZEPAM
     Dosage: 5 GTT, DAILY (5 DROPS AT NIGHT)
  11. ZAVEDOS [Suspect]
     Active Substance: IDARUBICIN
     Indication: ACUTE PROMYELOCYTIC LEUKAEMIA
     Dosage: 12.411 MG, UNK
     Dates: start: 20171211, end: 20171214

REACTIONS (4)
  - Febrile neutropenia [Recovered/Resolved]
  - Pyrexia [Recovered/Resolved]
  - Toothache [Recovered/Resolved]
  - Mucosal inflammation [Recovered/Resolved]
